FAERS Safety Report 21233953 (Version 1)
Quarter: 2022Q3

REPORT INFORMATION
  Report Type: Spontaneous
  Country: US (occurrence: US)
  Receive Date: 20220819
  Receipt Date: 20220819
  Transmission Date: 20221027
  Serious: Yes (Other)
  Sender: FDA-Public Use
  Company Number: US-MYLANLABS-2022M1087437

PATIENT
  Age: 41 Year
  Sex: Female

DRUGS (7)
  1. FLUOXETINE [Suspect]
     Active Substance: FLUOXETINE HYDROCHLORIDE
     Indication: Social anxiety disorder
     Dosage: 10 MILLIGRAM
     Route: 065
  2. SERTRALINE [Suspect]
     Active Substance: SERTRALINE HYDROCHLORIDE
     Indication: Social anxiety disorder
     Dosage: UNK
     Route: 065
  3. ESCITALOPRAM [Suspect]
     Active Substance: ESCITALOPRAM OXALATE
     Indication: Social anxiety disorder
     Dosage: UNK
     Route: 065
  4. VENLAFAXINE [Suspect]
     Active Substance: VENLAFAXINE HYDROCHLORIDE
     Indication: Social anxiety disorder
     Dosage: UNK
     Route: 065
  5. DESVENLAFAXINE SUCCINATE [Suspect]
     Active Substance: DESVENLAFAXINE SUCCINATE
     Indication: Social anxiety disorder
     Dosage: UNK
     Route: 065
  6. BUPROPION [Suspect]
     Active Substance: BUPROPION
     Indication: Social anxiety disorder
     Dosage: UNK
     Route: 065
  7. ALPRAZOLAM [Concomitant]
     Active Substance: ALPRAZOLAM
     Indication: Social anxiety disorder
     Dosage: 0.5 MILLIGRAM, QD
     Route: 048

REACTIONS (3)
  - Asphyxia [Recovered/Resolved]
  - Yawning [Recovered/Resolved]
  - Dyspnoea [Recovered/Resolved]
